FAERS Safety Report 5067220-7 (Version None)
Quarter: 2006Q3

REPORT INFORMATION
  Report Type: 
  Country: None (occurrence: None)
  Receive Date: 20060801
  Receipt Date: 20060719
  Transmission Date: 20061208
  Serious: Yes (Life-Threatening, Hospitalization)
  Sender: FDA-Public Use
  Company Number: ZA-NOVOPROD-255374

PATIENT
  Age: 40 Year
  Sex: Male
  Weight: 62 kg

DRUGS (4)
  1. LEVEMIR [Suspect]
     Indication: DIABETES MELLITUS INSULIN-DEPENDENT
     Route: 058
     Dates: start: 20060328
  2. ADALAT [Concomitant]
     Indication: HYPERTENSION
     Dosage: 30 MG, UNK
     Route: 048
     Dates: start: 20060220
  3. DISPRIL                            /00002701/ [Concomitant]
     Dosage: 100 MG, UNK
     Route: 048
     Dates: start: 20060221
  4. BEZAFIBRAT [Concomitant]
     Dosage: 400 MG, UNK
     Route: 048
     Dates: start: 20060222

REACTIONS (3)
  - FALL [None]
  - HAND FRACTURE [None]
  - HYPOGLYCAEMIC COMA [None]
